FAERS Safety Report 10652802 (Version 4)
Quarter: 2016Q2

REPORT INFORMATION
  Report Type: Spontaneous
  Country: US (occurrence: US)
  Receive Date: 20141215
  Receipt Date: 20160504
  Transmission Date: 20160815
  Serious: Yes (Other)
  Sender: FDA-Public Use
  Company Number: US-ELI_LILLY_AND_COMPANY-US201412001552

PATIENT
  Sex: Female
  Weight: 87.8 kg

DRUGS (10)
  1. AMBIEN [Concomitant]
     Active Substance: ZOLPIDEM TARTRATE
     Indication: INSOMNIA
     Dosage: 10 MG, UNKNOWN
     Route: 048
  2. ASACOL [Concomitant]
     Active Substance: MESALAMINE
     Dosage: 400 MG, TID
     Route: 048
  3. CYMBALTA [Suspect]
     Active Substance: DULOXETINE HYDROCHLORIDE
     Indication: PAIN
     Dosage: 60 MG, QD
     Route: 048
     Dates: end: 20120303
  4. GEMFIBROCIL [Concomitant]
     Dosage: 600 MG, BID
     Route: 048
  5. NAPROSYN [Concomitant]
     Active Substance: NAPROXEN
     Dosage: 500 MG, BID
     Route: 048
  6. CYMBALTA [Suspect]
     Active Substance: DULOXETINE HYDROCHLORIDE
     Indication: HOT FLUSH
     Dosage: 30 MG, BID
     Route: 048
  7. PREMARIN [Concomitant]
     Active Substance: ESTROGENS, CONJUGATED
     Indication: MENOPAUSAL SYMPTOMS
     Dosage: 0.5 MG, QD
     Route: 048
  8. OMEPRAZOL                          /00661201/ [Concomitant]
     Active Substance: OMEPRAZOLE
     Dosage: 20 MG, OTHER
     Route: 048
  9. LORATADINE. [Concomitant]
     Active Substance: LORATADINE
     Indication: RHINITIS ALLERGIC
     Dosage: 10 MG, UNKNOWN
     Route: 048
  10. CYMBALTA [Suspect]
     Active Substance: DULOXETINE HYDROCHLORIDE
     Indication: DEPRESSION
     Dosage: UNK, UNKNOWN
     Route: 048
     Dates: start: 2004, end: 201301

REACTIONS (12)
  - Drug withdrawal syndrome [Unknown]
  - Blood alkaline phosphatase increased [Unknown]
  - Paraesthesia [Unknown]
  - Ear haemorrhage [Unknown]
  - Dizziness [Unknown]
  - Breast cyst [Unknown]
  - Mood swings [Unknown]
  - Anxiety [Unknown]
  - Breast mass [Unknown]
  - Disturbance in attention [Unknown]
  - Memory impairment [Unknown]
  - Hyperhidrosis [Unknown]
